FAERS Safety Report 11080357 (Version 1)
Quarter: 2015Q2

REPORT INFORMATION
  Report Type: Spontaneous
  Country: US (occurrence: None)
  Receive Date: 20150429
  Receipt Date: 20150429
  Transmission Date: 20150821
  Serious: Yes (Other)
  Sender: FDA-Public Use
  Company Number: 001902729A

PATIENT
  Age: 50 Year
  Sex: Female

DRUGS (5)
  1. PROACTIV PLUS COMPLEXION PERFECTING HYDRATOR [Suspect]
     Active Substance: SALICYLIC ACID
     Indication: ACNE
     Route: 061
     Dates: start: 20150225, end: 20150228
  2. VITAMIN C [Concomitant]
     Active Substance: ASCORBIC ACID
  3. PROACTIVPLUS SKIN SMOOTHING EXFOLIATOR [Suspect]
     Active Substance: BENZOYL PEROXIDE
     Indication: ACNE
     Route: 061
     Dates: start: 20150225, end: 20150228
  4. PROACTIV PLUS PORE TARGETING TREATMENT [Suspect]
     Active Substance: BENZOYL PEROXIDE
     Indication: ACNE
     Route: 061
     Dates: start: 20150225, end: 20150228
  5. NEXIUM [Concomitant]
     Active Substance: ESOMEPRAZOLE MAGNESIUM

REACTIONS (6)
  - Dyspnoea [None]
  - Dysphagia [None]
  - Dry skin [None]
  - Hypersensitivity [None]
  - Burning sensation [None]
  - Eye swelling [None]

NARRATIVE: CASE EVENT DATE: 20150228
